FAERS Safety Report 8997117 (Version 1)
Quarter: 2013Q1

REPORT INFORMATION
  Report Type: Spontaneous
  Country: NL (occurrence: NL)
  Receive Date: 20130104
  Receipt Date: 20130104
  Transmission Date: 20140127
  Serious: Yes (Other)
  Sender: FDA-Public Use
  Company Number: PHHY2012NL122093

PATIENT
  Sex: Female

DRUGS (2)
  1. ACLASTA [Suspect]
     Indication: OSTEOPOROSIS
     Dosage: 5 MG, ONCE PER 364 DAYS
     Route: 042
     Dates: start: 20101223
  2. ACLASTA [Suspect]
     Dosage: 5 MG, ONCE PER 364 DAYS
     Route: 042
     Dates: start: 20120106

REACTIONS (1)
  - Dementia [Unknown]
